FAERS Safety Report 23576749 (Version 1)
Quarter: 2024Q1

REPORT INFORMATION
  Report Type: Spontaneous
  Country: US (occurrence: US)
  Receive Date: 20240228
  Receipt Date: 20240228
  Transmission Date: 20240409
  Serious: No
  Sender: FDA-Public Use
  Company Number: US-BIOVITRUM-2024-US-003196

PATIENT
  Age: 6 Month
  Sex: Male
  Weight: 5.8 kg

DRUGS (4)
  1. SYNAGIS [Suspect]
     Active Substance: PALIVIZUMAB
     Indication: Premature baby
     Dosage: 15 MG/KG ONCE A MONTH
     Route: 030
  2. SYNAGIS [Suspect]
     Active Substance: PALIVIZUMAB
     Indication: Anaemia neonatal
  3. SYNAGIS [Suspect]
     Active Substance: PALIVIZUMAB
     Indication: Illness
  4. SYNAGIS [Suspect]
     Active Substance: PALIVIZUMAB
     Indication: Bronchopulmonary dysplasia

REACTIONS (4)
  - Cough [Unknown]
  - Hypersensitivity [Unknown]
  - Gait disturbance [Unknown]
  - Pyrexia [Unknown]
